FAERS Safety Report 24179514 (Version 3)
Quarter: 2025Q1

REPORT INFORMATION
  Report Type: Spontaneous
  Country: US (occurrence: US)
  Receive Date: 20240806
  Receipt Date: 20250207
  Transmission Date: 20250409
  Serious: No
  Sender: PFIZER
  Company Number: US-PFIZER INC-PV202400101908

PATIENT
  Age: 30 Year
  Sex: Male

DRUGS (2)
  1. CIBINQO [Suspect]
     Active Substance: ABROCITINIB
     Indication: Dermatitis atopic
     Dosage: 100 MG, DAILY
     Route: 048
     Dates: start: 20230919
  2. AUVI-Q [Concomitant]
     Active Substance: EPINEPHRINE

REACTIONS (4)
  - Product dose omission in error [Unknown]
  - Sleep disorder [Unknown]
  - Skin papilloma [Unknown]
  - Product dose omission issue [Unknown]
